FAERS Safety Report 24449228 (Version 2)
Quarter: 2025Q1

REPORT INFORMATION
  Report Type: Report from Study
  Country: US (occurrence: US)
  Receive Date: 20241017
  Receipt Date: 20250126
  Transmission Date: 20250408
  Serious: Yes (Hospitalization, Other)
  Sender: JOHNSON AND JOHNSON
  Company Number: US-JNJFOC-20241028336

PATIENT
  Sex: Male

DRUGS (1)
  1. REMICADE [Suspect]
     Active Substance: INFLIXIMAB
     Indication: Colitis ulcerative
     Route: 041

REACTIONS (8)
  - Thrombosis [Unknown]
  - Femur fracture [Unknown]
  - Prostate cancer [Not Recovered/Not Resolved]
  - Pneumonia [Unknown]
  - Haemorrhage [Unknown]
  - Joint dislocation [Unknown]
  - Fall [Unknown]
  - Drug ineffective [Unknown]
